FAERS Safety Report 13538830 (Version 2)
Quarter: 2017Q4

REPORT INFORMATION
  Report Type: Spontaneous
  Country: US (occurrence: US)
  Receive Date: 20170512
  Receipt Date: 20171121
  Transmission Date: 20180320
  Serious: No
  Sender: FDA-Public Use
  Company Number: US-JNJFOC-20170315346

PATIENT
  Age: 20 Year
  Sex: Male

DRUGS (9)
  1. INVEGA SUSTENNA [Suspect]
     Active Substance: PALIPERIDONE PALMITATE
     Indication: SCHIZOPHRENIA
     Route: 030
     Dates: start: 20120329, end: 20130131
  2. INVEGA SUSTENNA [Suspect]
     Active Substance: PALIPERIDONE PALMITATE
     Indication: BIPOLAR DISORDER
     Route: 030
     Dates: start: 20120329, end: 20130131
  3. RISPERDAL CONSTA [Suspect]
     Active Substance: RISPERIDONE
     Indication: SCHIZOPHRENIA
     Dosage: VARIED DOSE OF 2 MG AND 4 MG
     Route: 030
     Dates: start: 20080604, end: 2010
  4. RISPERDAL M-TAB [Suspect]
     Active Substance: RISPERIDONE
     Indication: SCHIZOPHRENIA
     Dosage: VARIED DOSE OF 2 MG AND 4 MG
     Route: 048
     Dates: start: 20080521
  5. RISPERDAL [Suspect]
     Active Substance: RISPERIDONE
     Indication: SCHIZOPHRENIA
     Dosage: VARIED DOSE OF 2 MG AND 4 MG
     Route: 048
     Dates: start: 20080521, end: 2010
  6. RISPERDAL M-TAB [Suspect]
     Active Substance: RISPERIDONE
     Indication: BIPOLAR DISORDER
     Dosage: VARIED DOSE OF 2 MG AND 4 MG
     Route: 048
     Dates: start: 20080521
  7. RISPERDAL CONSTA [Suspect]
     Active Substance: RISPERIDONE
     Indication: PARANOIA
     Dosage: VARIED DOSE OF 2 MG AND 4 MG
     Route: 030
     Dates: start: 20080604, end: 2010
  8. RISPERDAL [Suspect]
     Active Substance: RISPERIDONE
     Indication: BIPOLAR DISORDER
     Dosage: VARIED DOSE OF 2 MG AND 4 MG
     Route: 048
     Dates: start: 20080521, end: 2010
  9. RISPERDAL CONSTA [Suspect]
     Active Substance: RISPERIDONE
     Indication: BIPOLAR DISORDER
     Dosage: VARIED DOSE OF 2 MG AND 4 MG
     Route: 030
     Dates: start: 20080604, end: 2010

REACTIONS (3)
  - Gynaecomastia [Unknown]
  - Drug ineffective [Unknown]
  - Emotional disorder [Unknown]

NARRATIVE: CASE EVENT DATE: 201010
